FAERS Safety Report 21653202 (Version 1)
Quarter: 2022Q4

REPORT INFORMATION
  Report Type: Spontaneous
  Country: US (occurrence: US)
  Receive Date: 20221128
  Receipt Date: 20221128
  Transmission Date: 20230113
  Serious: Yes (Other)
  Sender: FDA-Public Use
  Company Number: US-BRISTOL-MYERS SQUIBB COMPANY-2022-143913

PATIENT
  Age: 85 Year
  Sex: Male
  Weight: 58 kg

DRUGS (20)
  1. REVLIMID [Suspect]
     Active Substance: LENALIDOMIDE
     Indication: Plasma cell myeloma
     Dosage: FREQUENCY- 21 DAYS ON, 7 DAYS OFF.
     Route: 048
     Dates: start: 20220928
  2. ALBUTEROL SULFATE [Concomitant]
     Active Substance: ALBUTEROL SULFATE
     Indication: Product used for unknown indication
     Dosage: DOSE- 108(90 BASE) INHALA, FREQUENCY- AS NEEDED.
     Route: 065
     Dates: start: 20220922
  3. ATORVASTATIN CALCIUM [Concomitant]
     Active Substance: ATORVASTATIN CALCIUM
     Indication: Product used for unknown indication
     Dosage: FREQUENCY- ORAL
     Route: 048
     Dates: start: 20220922
  4. TUMS [Concomitant]
     Active Substance: CALCIUM CARBONATE
     Indication: Product used for unknown indication
     Dosage: FREQUENCY - AS NEEDED.
     Route: 048
     Dates: start: 20220922
  5. COENZYME Q10 [Concomitant]
     Active Substance: DIETARY SUPPLEMENT\UBIDECARENONE
     Indication: Product used for unknown indication
     Dosage: FREQUENCY- DAILY
     Route: 048
     Dates: start: 20220922
  6. DILTIAZEM HYDROCHLORIDE [Concomitant]
     Active Substance: DILTIAZEM HYDROCHLORIDE
     Indication: Product used for unknown indication
     Dosage: FREQUENCY- DAILY
     Route: 048
     Dates: start: 20220922
  7. LEVOFLOXACIN [Concomitant]
     Active Substance: LEVOFLOXACIN
     Indication: Product used for unknown indication
     Route: 048
     Dates: start: 20220922
  8. LEVOTHYROXINE SODIUM [Concomitant]
     Active Substance: LEVOTHYROXINE SODIUM
     Indication: Product used for unknown indication
     Dosage: FREQUENCY- DAILY.
     Route: 048
     Dates: start: 20220922
  9. LUTEIN [Concomitant]
     Active Substance: LUTEIN
     Indication: Product used for unknown indication
     Dosage: FREQUENCY- ORAL
     Route: 048
     Dates: start: 20220922
  10. MORPHINE SULFATE [Concomitant]
     Active Substance: MORPHINE SULFATE
     Indication: Product used for unknown indication
     Dosage: FREQUENCY- AS NEEDED.
     Route: 048
     Dates: start: 20220922
  11. ONDANSETRON [Concomitant]
     Active Substance: ONDANSETRON
     Indication: Product used for unknown indication
     Dosage: FREQUENCY- AS NEEDED.
     Route: 048
     Dates: start: 20220922
  12. OXYCODONE [Concomitant]
     Active Substance: OXYCODONE
     Indication: Product used for unknown indication
     Dosage: FREQUENCY- AS NEEDED.
     Route: 048
     Dates: start: 20220922
  13. MIRALAX [Concomitant]
     Active Substance: POLYETHYLENE GLYCOL 3350
     Indication: Product used for unknown indication
     Dosage: FREQUENCY- AS NEEDED, DOSE- 17GM/SCOOP.
     Route: 048
     Dates: start: 20220922
  14. SILDENAFIL CITRATE [Concomitant]
     Active Substance: SILDENAFIL CITRATE
     Indication: Product used for unknown indication
     Dosage: FREQUENCY - AS NEEDED.
     Route: 048
     Dates: start: 20220922
  15. OXYCONTIN [Concomitant]
     Active Substance: OXYCODONE HYDROCHLORIDE
     Indication: Product used for unknown indication
     Dosage: OXYCONTIN ORAL TABLET 80MG 12-HOUR AB
     Route: 048
     Dates: start: 20220926
  16. REVLIMID [Concomitant]
     Active Substance: LENALIDOMIDE
     Indication: Product used for unknown indication
     Dosage: FREQUENCY- USE AS DIRECTED.
     Route: 048
     Dates: start: 20220922, end: 20221026
  17. REVLIMID [Concomitant]
     Active Substance: LENALIDOMIDE
     Dosage: FREQUENCY- USE AS DIRECTED, COMMENTS- REFILL- DOSE CHANGE.28CT
     Route: 048
     Dates: start: 20221026, end: 20221123
  18. REVLIMID [Concomitant]
     Active Substance: LENALIDOMIDE
     Dosage: FREQUENCY- USE AS DIRECTED, 28CT.
     Route: 048
     Dates: start: 20221121
  19. PROBIOTIC [BIFIDOBACTERIUM INFANTIS;LACTOBACILLUS ACIDOPHILUS] [Concomitant]
     Indication: Product used for unknown indication
     Dosage: FREQUENCY- DAILY
     Route: 048
     Dates: start: 20220922
  20. SENNA LEAF [Concomitant]
     Active Substance: SENNA LEAF
     Indication: Product used for unknown indication
     Dosage: DOSE- 176MG/5ML, FREQUENCY- AS NEEDED.
     Route: 048
     Dates: start: 20220922

REACTIONS (1)
  - Neutropenia [Recovered/Resolved]

NARRATIVE: CASE EVENT DATE: 20221114
